FAERS Safety Report 19515409 (Version 2)
Quarter: 2021Q3

REPORT INFORMATION
  Report Type: Spontaneous
  Country: JP (occurrence: JP)
  Receive Date: 20210709
  Receipt Date: 20210720
  Transmission Date: 20211014
  Serious: Yes (Death)
  Sender: FDA-Public Use
  Company Number: JP-ALLERGAN-2124901US

PATIENT
  Sex: Male

DRUGS (10)
  1. ROXADUSTAT. [Suspect]
     Active Substance: ROXADUSTAT
     Dosage: 100 MG, UNKNOWN
     Route: 048
     Dates: start: 20210226
  2. RIONA [Concomitant]
     Active Substance: FERRIC CITRATE ANHYDROUS
     Dosage: 750 MG, QD
     Route: 048
  3. TELMISARTANA [Concomitant]
     Dosage: 40 MG, QD
     Route: 048
  4. LINACLOTIDE ? BP [Suspect]
     Active Substance: LINACLOTIDE
     Indication: CONSTIPATION
     Dosage: 0.5 MG, QD
     Route: 048
  5. TEGRETOL [Concomitant]
     Active Substance: CARBAMAZEPINE
     Dosage: 600 MG, QD
     Route: 048
  6. EQUA [Concomitant]
     Active Substance: VILDAGLIPTIN
     Dosage: 50 MG, QD
     Route: 048
  7. ROXADUSTAT. [Suspect]
     Active Substance: ROXADUSTAT
     Indication: NEPHROGENIC ANAEMIA
     Dosage: 50 MG, UNKNOWN
     Route: 048
     Dates: start: 20210503
  8. CILOSTAZOL. [Concomitant]
     Active Substance: CILOSTAZOL
     Dosage: 100 MG, QD
     Route: 065
  9. ZESULAN [Concomitant]
     Active Substance: MEQUITAZINE
     Dosage: UNK
     Route: 065
  10. SUREPOST [Concomitant]
     Active Substance: REPAGLINIDE
     Dosage: 1.5 MG, QD
     Route: 048

REACTIONS (1)
  - Marasmus [Fatal]

NARRATIVE: CASE EVENT DATE: 20210531
